FAERS Safety Report 4763072-0 (Version None)
Quarter: 2005Q3

REPORT INFORMATION
  Report Type: 
  Country: None (occurrence: None)
  Receive Date: 20050826
  Receipt Date: 20041110
  Transmission Date: 20060218
  Serious: Yes (Other)
  Sender: FDA-Public Use
  Company Number: USA-2004-0017602

PATIENT
  Age: 49 Year
  Sex: Female

DRUGS (5)
  1. OXYCONTIN TABLETS (OXYCODONE HYDROCHLORIDE0 [Suspect]
  2. CODEINE (CODEINE) [Suspect]
  3. PERCOCET [Suspect]
  4. PERCODAN [Suspect]
  5. TYLENOL W/ CODEINE NO. 3 [Suspect]

REACTIONS (1)
  - POLYSUBSTANCE ABUSE [None]
